FAERS Safety Report 23258056 (Version 1)
Quarter: 2023Q4

REPORT INFORMATION
  Report Type: Spontaneous
  Country: US (occurrence: None)
  Receive Date: 20231201
  Receipt Date: 20231201
  Transmission Date: 20240110
  Serious: No
  Sender: FDA-Public Use
  Company Number: None

PATIENT
  Sex: Female

DRUGS (1)
  1. KISQALI [Suspect]
     Active Substance: RIBOCICLIB
     Indication: Metastases to bone
     Dosage: 600MG ORAL??FREQUENCY: DAILY AT THE SAME TIME FOR 21 DAYS OF A 28 DAY CYCLE.?
     Route: 048
     Dates: start: 202309, end: 20231122

REACTIONS (1)
  - Drug ineffective [None]
